FAERS Safety Report 9219398 (Version 1)
Quarter: 2013Q2

REPORT INFORMATION
  Report Type: Spontaneous
  Country: US (occurrence: US)
  Receive Date: 20130409
  Receipt Date: 20130409
  Transmission Date: 20140414
  Serious: No
  Sender: FDA-Public Use
  Company Number: US-PFIZER INC-2013109865

PATIENT
  Age: 49 Year
  Sex: Male
  Weight: 81.63 kg

DRUGS (1)
  1. ALAVERT [Suspect]
     Indication: HYPERSENSITIVITY
     Dosage: 10 MG, 1X/DAY
     Route: 048
     Dates: start: 20130405, end: 20130405

REACTIONS (2)
  - Somnolence [Unknown]
  - Fatigue [Unknown]
